FAERS Safety Report 4394165-8 (Version None)
Quarter: 2004Q3

REPORT INFORMATION
  Report Type: 
  Country: None (occurrence: None)
  Receive Date: 20040712
  Receipt Date: 20040630
  Transmission Date: 20050211
  Serious: Yes (Hospitalization, Other)
  Sender: FDA-Public Use
  Company Number: US-BRISTOL-MYERS SQUIBB COMPANY-12628905

PATIENT
  Age: 61 Year
  Sex: Female
  Weight: 64 kg

DRUGS (7)
  1. KENALOG-40 [Suspect]
     Indication: MACULAR OEDEMA
     Route: 031
     Dates: start: 20030303, end: 20040511
  2. KENALOG-40 [Suspect]
     Indication: RETINAL VEIN OCCLUSION
     Route: 031
     Dates: start: 20030303, end: 20040511
  3. VERAPAMIL [Concomitant]
  4. CELEBREX [Concomitant]
  5. PLAVIX [Concomitant]
  6. LIPITOR [Concomitant]
  7. HORMONES [Concomitant]

REACTIONS (8)
  - BLINDNESS UNILATERAL [None]
  - CATARACT [None]
  - GLAUCOMA [None]
  - INFLAMMATION [None]
  - OPPORTUNISTIC INFECTION [None]
  - RETINAL DETACHMENT [None]
  - RETINAL TEAR [None]
  - SCAR [None]
